FAERS Safety Report 8495311-7 (Version None)
Quarter: 2012Q3

REPORT INFORMATION
  Report Type: 
  Country: None (occurrence: None)
  Receive Date: 20120709
  Receipt Date: 20120703
  Transmission Date: 20120928
  Serious: Yes (Other)
  Sender: FDA-Public Use
  Company Number: US-PFIZER INC-2012159838

PATIENT
  Sex: Female

DRUGS (1)
  1. SUTENT [Suspect]
     Indication: BREAST CANCER FEMALE
     Dosage: 12.5 MG X 3 PO DAILY
     Route: 048
     Dates: start: 20120203

REACTIONS (1)
  - GALLBLADDER DISORDER [None]
